FAERS Safety Report 25319350 (Version 2)
Quarter: 2025Q4

REPORT INFORMATION
  Report Type: Spontaneous
  Country: EU (occurrence: EU)
  Receive Date: 20250515
  Receipt Date: 20251222
  Transmission Date: 20260117
  Serious: Yes (Life-Threatening, Other)
  Sender: MYLAN
  Company Number: EU-SANDOZ-SDZ2025SK027130

PATIENT
  Age: 53 Year

DRUGS (40)
  1. LENALIDOMIDE [Suspect]
     Active Substance: LENALIDOMIDE
     Indication: Plasma cell myeloma
     Dosage: UNK
  2. LENALIDOMIDE [Suspect]
     Active Substance: LENALIDOMIDE
     Dosage: UNK
     Route: 065
  3. LENALIDOMIDE [Suspect]
     Active Substance: LENALIDOMIDE
     Dosage: UNK
     Route: 065
  4. LENALIDOMIDE [Suspect]
     Active Substance: LENALIDOMIDE
     Dosage: UNK
  5. IXAZOMIB [Suspect]
     Active Substance: IXAZOMIB
     Indication: Plasma cell myeloma
     Dosage: UNK
  6. IXAZOMIB [Suspect]
     Active Substance: IXAZOMIB
     Dosage: UNK
     Route: 065
  7. IXAZOMIB [Suspect]
     Active Substance: IXAZOMIB
     Dosage: UNK
     Route: 065
  8. IXAZOMIB [Suspect]
     Active Substance: IXAZOMIB
     Dosage: UNK
  9. DEXTROMETHORPHAN [Suspect]
     Active Substance: DEXTROMETHORPHAN
     Indication: Plasma cell myeloma
     Dosage: UNK
  10. DEXTROMETHORPHAN [Suspect]
     Active Substance: DEXTROMETHORPHAN
     Dosage: UNK
     Route: 065
  11. DEXTROMETHORPHAN [Suspect]
     Active Substance: DEXTROMETHORPHAN
     Dosage: UNK
     Route: 065
  12. DEXTROMETHORPHAN [Suspect]
     Active Substance: DEXTROMETHORPHAN
     Dosage: UNK
  13. DARATUMUMAB [Concomitant]
     Active Substance: DARATUMUMAB
     Indication: Product used for unknown indication
     Dosage: UNK UNK, QW
     Dates: start: 20250625
  14. DARATUMUMAB [Concomitant]
     Active Substance: DARATUMUMAB
     Dosage: UNK UNK, QW
     Route: 065
     Dates: start: 20250625
  15. DARATUMUMAB [Concomitant]
     Active Substance: DARATUMUMAB
     Dosage: UNK UNK, QW
     Route: 065
     Dates: start: 20250625
  16. DARATUMUMAB [Concomitant]
     Active Substance: DARATUMUMAB
     Dosage: UNK UNK, QW
     Dates: start: 20250625
  17. BORTEZOMIB [Concomitant]
     Active Substance: BORTEZOMIB
     Indication: Product used for unknown indication
     Dosage: UNK, QW
     Dates: start: 20250625
  18. BORTEZOMIB [Concomitant]
     Active Substance: BORTEZOMIB
     Dosage: UNK, QW
     Route: 065
     Dates: start: 20250625
  19. BORTEZOMIB [Concomitant]
     Active Substance: BORTEZOMIB
     Dosage: UNK, QW
     Route: 065
     Dates: start: 20250625
  20. BORTEZOMIB [Concomitant]
     Active Substance: BORTEZOMIB
     Dosage: UNK, QW
     Dates: start: 20250625
  21. DEXAMETHASONE [Concomitant]
     Active Substance: DEXAMETHASONE
     Indication: Product used for unknown indication
     Dosage: UNK, QW
     Dates: start: 20250625
  22. DEXAMETHASONE [Concomitant]
     Active Substance: DEXAMETHASONE
     Dosage: UNK, QW
     Route: 065
     Dates: start: 20250625
  23. DEXAMETHASONE [Concomitant]
     Active Substance: DEXAMETHASONE
     Dosage: UNK, QW
     Route: 065
     Dates: start: 20250625
  24. DEXAMETHASONE [Concomitant]
     Active Substance: DEXAMETHASONE
     Dosage: UNK, QW
     Dates: start: 20250625
  25. TALQUETAMAB [Concomitant]
     Active Substance: TALQUETAMAB
     Dosage: UNK
  26. TALQUETAMAB [Concomitant]
     Active Substance: TALQUETAMAB
     Dosage: UNK
  27. TALQUETAMAB [Concomitant]
     Active Substance: TALQUETAMAB
     Dosage: UNK
     Route: 065
  28. TALQUETAMAB [Concomitant]
     Active Substance: TALQUETAMAB
     Dosage: UNK
     Route: 065
  29. TALQUETAMAB [Concomitant]
     Active Substance: TALQUETAMAB
     Dosage: UNK, SO FAR, VGPR
  30. TALQUETAMAB [Concomitant]
     Active Substance: TALQUETAMAB
     Dosage: UNK, SO FAR, VGPR
  31. TALQUETAMAB [Concomitant]
     Active Substance: TALQUETAMAB
     Dosage: UNK, SO FAR, VGPR
     Route: 065
  32. TALQUETAMAB [Concomitant]
     Active Substance: TALQUETAMAB
     Dosage: UNK, SO FAR, VGPR
     Route: 065
  33. DOXORUBICIN [Concomitant]
     Active Substance: DOXORUBICIN
     Indication: Product used for unknown indication
     Dosage: UNK
  34. DOXORUBICIN [Concomitant]
     Active Substance: DOXORUBICIN
     Dosage: UNK
     Route: 065
  35. DOXORUBICIN [Concomitant]
     Active Substance: DOXORUBICIN
     Dosage: UNK
     Route: 065
  36. DOXORUBICIN [Concomitant]
     Active Substance: DOXORUBICIN
     Dosage: UNK
  37. CYCLOPHOSPHAMIDE [Concomitant]
     Active Substance: CYCLOPHOSPHAMIDE
     Indication: Product used for unknown indication
     Dosage: UNK
  38. CYCLOPHOSPHAMIDE [Concomitant]
     Active Substance: CYCLOPHOSPHAMIDE
     Dosage: UNK
     Route: 065
  39. CYCLOPHOSPHAMIDE [Concomitant]
     Active Substance: CYCLOPHOSPHAMIDE
     Dosage: UNK
     Route: 065
  40. CYCLOPHOSPHAMIDE [Concomitant]
     Active Substance: CYCLOPHOSPHAMIDE
     Dosage: UNK

REACTIONS (5)
  - Pneumonia [Unknown]
  - Secondary immunodeficiency [Unknown]
  - Plasma cell myeloma [Unknown]
  - Influenza A virus test positive [Unknown]
  - Oxygen saturation decreased [Unknown]
